FAERS Safety Report 8445312-X (Version None)
Quarter: 2012Q2

REPORT INFORMATION
  Report Type: 
  Country: None (occurrence: None)
  Receive Date: 20120530
  Receipt Date: 20120515
  Transmission Date: 20120825
  Serious: Yes (Other)
  Sender: FDA-Public Use
  Company Number: JP-2012-15239

PATIENT
  Age: 89 Year
  Sex: Female

DRUGS (3)
  1. HANP (CARPERITIDE) [Concomitant]
  2. SAMSCA [Suspect]
     Indication: FLUID RETENTION
     Dosage: 15 MG, QAM, ORAL
     Route: 048
     Dates: start: 20120404, end: 20120405
  3. DOPAMINE HYDROCHLORIDE [Concomitant]

REACTIONS (5)
  - FLUID RETENTION [None]
  - DEHYDRATION [None]
  - HYPOTENSION [None]
  - URINE OUTPUT INCREASED [None]
  - HYPOVOLAEMIA [None]
